FAERS Safety Report 7611445-0 (Version None)
Quarter: 2011Q3

REPORT INFORMATION
  Report Type: 
  Country: None (occurrence: None)
  Receive Date: 20110715
  Receipt Date: 20110615
  Transmission Date: 20111222
  Serious: No
  Sender: FDA-Public Use
  Company Number: US-BAYER-2011-052694

PATIENT
  Age: 81 Year
  Sex: Male
  Weight: 79 kg

DRUGS (3)
  1. ZOCOR [Concomitant]
  2. TERAZOSIN HCL [Concomitant]
  3. ALEVE (CAPLET) [Suspect]
     Indication: ANALGESIC THERAPY
     Dosage: 2 DF, BID
     Route: 048
     Dates: start: 20110610, end: 20110614

REACTIONS (1)
  - FAECES DISCOLOURED [None]
